FAERS Safety Report 4892658-8 (Version None)
Quarter: 2006Q1

REPORT INFORMATION
  Report Type: 
  Country: None (occurrence: None)
  Receive Date: 20060126
  Receipt Date: 20060124
  Transmission Date: 20060701
  Serious: Yes (Death, Other)
  Sender: FDA-Public Use
  Company Number: JP-SANOFI-SYNTHELABO-F01200600192

PATIENT
  Sex: Male
  Weight: 44 kg

DRUGS (3)
  1. OXALIPLATIN [Suspect]
     Indication: COLON CANCER
     Route: 042
     Dates: start: 20050623, end: 20050623
  2. FLUOROURACIL [Suspect]
     Dosage: 400MG/BODY =294.1MG/M2 IN BOLUS THEN 600MG/BODY=441.2MG/M2 AS CONTINUOUS INFUSION ON DAYS 1 AND 2
     Route: 042
     Dates: start: 20050623, end: 20050624
  3. CALCIUM LEVOFOLINATE [Suspect]
     Route: 042
     Dates: start: 20050623, end: 20050624

REACTIONS (10)
  - ALANINE AMINOTRANSFERASE INCREASED [None]
  - ANOREXIA [None]
  - ASPARTATE AMINOTRANSFERASE INCREASED [None]
  - DYSAESTHESIA PHARYNX [None]
  - DYSPNOEA [None]
  - HAEMOGLOBIN DECREASED [None]
  - NAUSEA [None]
  - ORAL INTAKE REDUCED [None]
  - PNEUMONIA ASPIRATION [None]
  - PULMONARY FIBROSIS [None]
